FAERS Safety Report 4375802-0 (Version None)
Quarter: 2004Q2

REPORT INFORMATION
  Report Type: 
  Country: None (occurrence: None)
  Receive Date: 20040611
  Receipt Date: 20040603
  Transmission Date: 20050107
  Serious: Yes (Hospitalization)
  Sender: FDA-Public Use
  Company Number: PHRM2004FR01990

PATIENT
  Age: 35 Year
  Sex: Male

DRUGS (4)
  1. TRILEPTAL [Suspect]
     Indication: EPILEPSY
     Dosage: 600 MG, BID
     Route: 048
     Dates: start: 20040401
  2. APRANAX [Suspect]
     Indication: BACK PAIN
     Dates: start: 20040524, end: 20040603
  3. CODOLIPRANE [Suspect]
     Indication: BACK PAIN
     Dates: start: 20040524
  4. DOLIPRANE [Suspect]
     Indication: BACK PAIN
     Dates: start: 20040524

REACTIONS (4)
  - BALANCE DISORDER [None]
  - DIPLOPIA [None]
  - DRUG INTERACTION [None]
  - HYPONATRAEMIA [None]
